FAERS Safety Report 5619666-3 (Version None)
Quarter: 2008Q1

REPORT INFORMATION
  Report Type: 
  Country: None (occurrence: None)
  Receive Date: 20080208
  Receipt Date: 20080130
  Transmission Date: 20080703
  Serious: Yes (Hospitalization)
  Sender: FDA-Public Use
  Company Number: IT-JNJFOC-20071100319

PATIENT
  Age: 50 Year
  Sex: Female

DRUGS (1)
  1. REMICADE [Suspect]
     Indication: PARAPSORIASIS
     Route: 042

REACTIONS (2)
  - IMMUNODEFICIENCY [None]
  - INFLUENZA LIKE ILLNESS [None]
